FAERS Safety Report 7829847-6 (Version None)
Quarter: 2011Q4

REPORT INFORMATION
  Report Type: 
  Country: None (occurrence: None)
  Receive Date: 20111018
  Receipt Date: 20111010
  Transmission Date: 20120403
  Serious: Yes (Other)
  Sender: FDA-Public Use
  Company Number: GER/UKI/09/0005685

PATIENT
  Age: 42 Year
  Sex: Female

DRUGS (1)
  1. LAMOTRIGINE [Suspect]
     Indication: BIPOLAR II DISORDER
     Dosage: 25 MG    50 MG    100 MG

REACTIONS (5)
  - NIGHTMARE [None]
  - HEADACHE [None]
  - HYPERACUSIS [None]
  - HALLUCINATION, VISUAL [None]
  - SLEEP DISORDER [None]
